FAERS Safety Report 18489372 (Version 3)
Quarter: 2020Q4

REPORT INFORMATION
  Report Type: Spontaneous
  Country: US (occurrence: US)
  Receive Date: 20201111
  Receipt Date: 20201211
  Transmission Date: 20210114
  Serious: Yes (Other)
  Sender: FDA-Public Use
  Company Number: US-HORIZON-2020HZN01045

PATIENT
  Age: 82 Year
  Sex: Male
  Weight: 87.2 kg

DRUGS (10)
  1. FOLIC ACID. [Concomitant]
     Active Substance: FOLIC ACID
  2. TEPEZZA [Suspect]
     Active Substance: TEPROTUMUMAB-TRBW
     Indication: TOXIC GOITRE
     Dosage: 1820MG (38.2ML) EVERY 3 WEEKS
     Route: 050
     Dates: start: 20201014
  3. LOSARTAN. [Concomitant]
     Active Substance: LOSARTAN
  4. METHIMAZOLE. [Concomitant]
     Active Substance: METHIMAZOLE
  5. SIMVASTATIN. [Concomitant]
     Active Substance: SIMVASTATIN
  6. VITAMIN D [Concomitant]
     Active Substance: VITAMIN D NOS
  7. CLARITIN [Concomitant]
     Active Substance: LORATADINE
  8. METFORMIN [Concomitant]
     Active Substance: METFORMIN HYDROCHLORIDE
  9. HUMALOG [Concomitant]
     Active Substance: INSULIN LISPRO
  10. OMEPRAZOLE. [Concomitant]
     Active Substance: OMEPRAZOLE

REACTIONS (2)
  - Weight decreased [Unknown]
  - Blood glucose increased [Recovering/Resolving]
